FAERS Safety Report 26057495 (Version 1)
Quarter: 2025Q4

REPORT INFORMATION
  Report Type: Spontaneous
  Country: US (occurrence: US)
  Receive Date: 20251118
  Receipt Date: 20251118
  Transmission Date: 20260118
  Serious: Yes (Death)
  Sender: LEGACY PHARMACEUTICAL PACKAGING
  Company Number: US-LEGACY PHARMA INC. SEZC-LGP202511-000341

PATIENT

DRUGS (4)
  1. ESBRIET [Suspect]
     Active Substance: PIRFENIDONE
     Dosage: STARTED APPROXIMATELY 2016-2017 AND WAS IN CONTINUOUS USE UNTIL DEATH; 801 MILLIGRAM, TID;  TAKE 1 T
     Route: 048
  2. ESBRIET [Suspect]
     Active Substance: PIRFENIDONE
     Dosage: STARTED APPROXIMATELY 2016-2017 AND WAS IN CONTINUOUS USE UNTIL DEATH; 267 MILLIGRAM, TID;  TAKE 1 T
     Route: 048
  3. MORPHINE [Concomitant]
     Active Substance: MORPHINE
     Indication: Product used for unknown indication
     Dosage: DOSE INCREASED RECENTLY
     Route: 065
  4. TYVASO [Concomitant]
     Active Substance: TREPROSTINIL
     Indication: Product used for unknown indication
     Dosage: 64 UNITS PUT ON THIS MEDICATION
     Route: 065

REACTIONS (1)
  - Death [Fatal]
